FAERS Safety Report 5915670-6 (Version None)
Quarter: 2008Q4

REPORT INFORMATION
  Report Type: 
  Country: None (occurrence: None)
  Receive Date: 20081010
  Receipt Date: 20080929
  Transmission Date: 20090506
  Serious: Yes (Other)
  Sender: FDA-Public Use
  Company Number: JP-ABBOTT-08P-087-0480843-00

PATIENT
  Age: 61 Year
  Sex: Male

DRUGS (10)
  1. LEUPROLIDE ACETATE [Suspect]
     Indication: PROSTATE CANCER STAGE IV
     Route: 058
     Dates: start: 20061012
  2. ETHINYL ESTRADIOL TAB [Suspect]
     Indication: PROSTATE CANCER STAGE IV
     Route: 048
     Dates: start: 20080605, end: 20080615
  3. ETHINYL ESTRADIOL TAB [Suspect]
     Route: 048
     Dates: start: 20080616, end: 20080701
  4. DOCETAXEL [Suspect]
     Indication: PROSTATE CANCER STAGE IV
     Route: 042
     Dates: start: 20080626, end: 20080626
  5. BICALUTAMIDE [Concomitant]
     Indication: PROSTATE CANCER STAGE IV
     Route: 048
     Dates: start: 20060408, end: 20070201
  6. OMEPRAZOLE [Concomitant]
     Indication: GASTRITIS
     Route: 048
     Dates: end: 20061122
  7. FLUTAMIDE [Concomitant]
     Indication: PROSTATE CANCER STAGE IV
     Route: 048
     Dates: start: 20070705, end: 20080313
  8. CHLORMADINONE ACETATE TAB [Concomitant]
     Indication: PROSTATE CANCER STAGE IV
     Route: 048
     Dates: start: 20080424, end: 20080605
  9. ZOLEDRONIC ACID [Concomitant]
     Indication: PROSTATE CANCER STAGE IV
     Route: 042
     Dates: start: 20080626, end: 20080626
  10. DECADRON [Concomitant]
     Indication: PROSTATE CANCER STAGE IV
     Route: 048
     Dates: start: 20080723

REACTIONS (5)
  - DIARRHOEA [None]
  - GASTRITIS [None]
  - HEPATIC FUNCTION ABNORMAL [None]
  - INJECTION SITE INDURATION [None]
  - NAUSEA [None]
